FAERS Safety Report 7561716-1 (Version None)
Quarter: 2011Q2

REPORT INFORMATION
  Report Type: 
  Country: None (occurrence: None)
  Receive Date: 20110621
  Receipt Date: 20110203
  Transmission Date: 20111010
  Serious: No
  Sender: FDA-Public Use
  Company Number: US-ASTRAZENECA-2011SE06558

PATIENT
  Age: 42 Year
  Sex: Female
  Weight: 99.8 kg

DRUGS (4)
  1. CHILDREN'S BENADRYL ALLERGY [Concomitant]
  2. AFRIN [Concomitant]
  3. RHINOCORT [Suspect]
     Indication: SINUSITIS
     Route: 045
     Dates: start: 20110101, end: 20110101
  4. ZYRTEC [Concomitant]

REACTIONS (3)
  - DRUG EXPOSURE DURING PREGNANCY [None]
  - ANXIETY [None]
  - RESTLESSNESS [None]
